FAERS Safety Report 4384081-X (Version None)
Quarter: 2004Q2

REPORT INFORMATION
  Report Type: 
  Country: None (occurrence: None)
  Receive Date: 20040622
  Receipt Date: 20040622
  Transmission Date: 20050107
  Serious: Yes (Hospitalization)
  Sender: FDA-Public Use
  Company Number: None

PATIENT
  Age: 53 Year
  Sex: Male
  Weight: 102.3 kg

DRUGS (6)
  1. QUADRAMET [Suspect]
     Indication: PROSTATE CANCER METASTATIC
     Dosage: 101.0 M CI
     Dates: start: 20040513
  2. INDOCIN [Concomitant]
  3. FLOMAX [Concomitant]
  4. TOPROL-XL [Concomitant]
  5. ATIVAN [Concomitant]
  6. NORVASC [Concomitant]

REACTIONS (1)
  - RENAL FAILURE ACUTE [None]
